FAERS Safety Report 9304400 (Version 1)
Quarter: 2013Q2

REPORT INFORMATION
  Report Type: Spontaneous
  Country: US (occurrence: US)
  Receive Date: 20130522
  Receipt Date: 20130522
  Transmission Date: 20140414
  Serious: Yes (Other)
  Sender: FDA-Public Use
  Company Number: US-WATSON-2013-08807

PATIENT
  Age: 48 Year
  Sex: Male
  Weight: 110 kg

DRUGS (3)
  1. HYDROCODONE BITARTRATE/ACETAMINOPHEN 5/500 (WATSON LABORATORIES) [Suspect]
     Indication: CONVULSION
     Dosage: ONE TAB TWICE DAILY
     Route: 048
     Dates: start: 201304, end: 201305
  2. DILANTIN                           /00017401/ [Concomitant]
     Indication: CONVULSION
     Dosage: UNK
     Route: 048
  3. PHENOBARBITAL [Concomitant]
     Indication: CONVULSION
     Dosage: UNK
     Route: 048

REACTIONS (6)
  - Convulsion [Recovered/Resolved]
  - Back pain [Unknown]
  - Affect lability [Unknown]
  - Drug dispensing error [Not Recovered/Not Resolved]
  - Wrong drug administered [None]
  - Mood altered [None]
